FAERS Safety Report 7488284-7 (Version None)
Quarter: 2011Q2

REPORT INFORMATION
  Report Type: 
  Country: None (occurrence: None)
  Receive Date: 20110518
  Receipt Date: 20110509
  Transmission Date: 20111010
  Serious: Yes (Hospitalization)
  Sender: FDA-Public Use
  Company Number: HR-ASTRAZENECA-2011SE27382

PATIENT
  Age: 60 Year
  Sex: Male
  Weight: 91 kg

DRUGS (6)
  1. DIPRIVAN [Suspect]
     Indication: GENERAL ANAESTHESIA
     Route: 042
     Dates: start: 20110324, end: 20110324
  2. SUFENTA PRESERVATIVE FREE [Interacting]
     Indication: GENERAL ANAESTHESIA
     Route: 042
     Dates: start: 20110324, end: 20110324
  3. TULIP [Concomitant]
     Route: 048
  4. MARTEFARIN [Concomitant]
     Route: 048
     Dates: start: 19940101, end: 20110321
  5. SEVOFLURANE [Interacting]
     Indication: GENERAL ANAESTHESIA
     Route: 055
     Dates: start: 20110324, end: 20110324
  6. BISOPROLOL FUMARATE [Concomitant]
     Route: 048

REACTIONS (3)
  - DRUG INTERACTION [None]
  - RENAL TUBULAR NECROSIS [None]
  - RENAL FAILURE ACUTE [None]
